FAERS Safety Report 9494861 (Version 2)
Quarter: 2013Q4

REPORT INFORMATION
  Report Type: Spontaneous
  Country: JP (occurrence: JP)
  Receive Date: 20130903
  Receipt Date: 20131016
  Transmission Date: 20140711
  Serious: Yes (Other)
  Sender: FDA-Public Use
  Company Number: JP-SANOFI-AVENTIS-2013SA086510

PATIENT
  Age: 67 Year
  Sex: Male

DRUGS (15)
  1. OXALIPLATIN [Suspect]
     Indication: COLORECTAL CANCER METASTATIC
     Dosage: -2 COURSES.
     Route: 065
     Dates: start: 201103
  2. OXALIPLATIN [Suspect]
     Indication: COLORECTAL CANCER METASTATIC
     Dosage: -2 COURSES.
     Route: 065
  3. OXALIPLATIN [Suspect]
     Indication: COLORECTAL CANCER METASTATIC
     Dosage: -2 COURSES.
     Route: 065
  4. OXALIPLATIN [Suspect]
     Indication: COLORECTAL CANCER METASTATIC
     Dosage: -2 COURSES.
     Route: 065
  5. BEVACIZUMAB [Concomitant]
     Indication: COLORECTAL CANCER METASTATIC
     Dates: start: 201103
  6. 5-FU [Concomitant]
     Indication: COLORECTAL CANCER METASTATIC
     Route: 042
     Dates: start: 201103
  7. 5-FU [Concomitant]
     Indication: COLORECTAL CANCER METASTATIC
     Route: 042
  8. 5-FU [Concomitant]
     Indication: COLORECTAL CANCER METASTATIC
     Route: 042
  9. 5-FU [Concomitant]
     Indication: COLORECTAL CANCER METASTATIC
     Dosage: CONTINUOUS DRIP INFUSION
     Route: 042
  10. 5-FU [Concomitant]
     Indication: COLORECTAL CANCER METASTATIC
     Dosage: CONTINUOUS DRIP INFUSION
     Route: 042
  11. 5-FU [Concomitant]
     Indication: COLORECTAL CANCER METASTATIC
     Dosage: CONTINUOUS DRIP INFUSION
     Route: 042
  12. 5-FU [Concomitant]
     Indication: COLORECTAL CANCER METASTATIC
     Dosage: CONTINUOUS DRIP INFUSION
     Route: 042
  13. LEVOFOLINATE [Concomitant]
     Indication: COLORECTAL CANCER METASTATIC
     Dates: start: 201103
  14. DEXAMETHASONE [Concomitant]
     Indication: PROPHYLAXIS OF NAUSEA AND VOMITING
     Dates: start: 201103
  15. SEROTONIN ANTAGONISTS [Concomitant]
     Indication: PROPHYLAXIS OF NAUSEA AND VOMITING
     Dates: start: 201103

REACTIONS (2)
  - Bone marrow failure [Unknown]
  - Neutropenia [Unknown]
